FAERS Safety Report 5967883-5 (Version None)
Quarter: 2008Q4

REPORT INFORMATION
  Report Type: 
  Country: None (occurrence: None)
  Receive Date: 20081126
  Receipt Date: 20081119
  Transmission Date: 20090506
  Serious: Yes (Death)
  Sender: FDA-Public Use
  Company Number: IT-BIOGENIDEC-2008BI030100

PATIENT
  Age: 38 Year
  Sex: Female
  Weight: 80 kg

DRUGS (3)
  1. TYSABRI [Suspect]
     Indication: MULTIPLE SCLEROSIS
     Route: 042
     Dates: start: 20080503
  2. CYPROFLOXACIN [Concomitant]
     Indication: CYSTITIS
     Route: 048
     Dates: start: 20081012, end: 20081016
  3. FOSFOMYCIN [Concomitant]
     Route: 048
     Dates: start: 20081021, end: 20081025

REACTIONS (1)
  - CARDIO-RESPIRATORY ARREST [None]
